FAERS Safety Report 25671885 (Version 3)
Quarter: 2025Q3

REPORT INFORMATION
  Report Type: Spontaneous
  Country: US (occurrence: US)
  Receive Date: 20250812
  Receipt Date: 20250915
  Transmission Date: 20251021
  Serious: Yes (Other)
  Sender: MALLINCKRODT
  Company Number: US-MALLINCKRODT-MNK202504897

PATIENT
  Sex: Female
  Weight: 183 kg

DRUGS (2)
  1. CORTICOTROPIN [Suspect]
     Active Substance: CORTICOTROPIN
     Indication: Asthma
     Route: 058
  2. FASENRA [Concomitant]
     Active Substance: BENRALIZUMAB

REACTIONS (4)
  - Cerebrovascular accident [Unknown]
  - Fatigue [Unknown]
  - Product use in unapproved indication [Unknown]
  - Product dose omission issue [Unknown]

NARRATIVE: CASE EVENT DATE: 20230101
